FAERS Safety Report 6274450-5 (Version None)
Quarter: 2009Q3

REPORT INFORMATION
  Report Type: 
  Country: None (occurrence: None)
  Receive Date: 20090716
  Receipt Date: 20090714
  Transmission Date: 20100115
  Serious: Yes (Hospitalization, Disabling)
  Sender: FDA-Public Use
  Company Number: SP02428

PATIENT
  Age: 8 Month
  Sex: Male
  Weight: 10.2059 kg

DRUGS (1)
  1. PEPCID [Suspect]
     Indication: GASTROOESOPHAGEAL REFLUX DISEASE
     Dosage: 1 ML (0.5 ML, 2 IN 1 D), ORAL
     Route: 048
     Dates: start: 20090301, end: 20090501

REACTIONS (3)
  - DYSKINESIA [None]
  - MUSCLE TWITCHING [None]
  - TREMOR [None]
